FAERS Safety Report 24278144 (Version 1)
Quarter: 2024Q3

REPORT INFORMATION
  Report Type: Spontaneous
  Country: JP (occurrence: JP)
  Receive Date: 20240903
  Receipt Date: 20240903
  Transmission Date: 20241016
  Serious: Yes (Death, Other)
  Sender: BAXTER
  Company Number: JP-shionogi-202406715

PATIENT

DRUGS (8)
  1. CYCLOPHOSPHAMIDE [Suspect]
     Active Substance: CYCLOPHOSPHAMIDE
     Indication: Autologous haematopoietic stem cell transplant
     Dosage: RECEIVED CONDITIONING REGIMEN WITH MCVAC (ENDOXAN)
     Route: 065
  2. CYCLOPHOSPHAMIDE [Suspect]
     Active Substance: CYCLOPHOSPHAMIDE
     Indication: B-cell lymphoma refractory
  3. ETOPOSIDE [Suspect]
     Active Substance: ETOPOSIDE
     Indication: Autologous haematopoietic stem cell transplant
     Dosage: RECEIVED CONDITIONING REGIMEN WITH MCVAC
     Route: 065
  4. ETOPOSIDE [Suspect]
     Active Substance: ETOPOSIDE
     Indication: B-cell lymphoma refractory
  5. RANIMUSTINE [Suspect]
     Active Substance: RANIMUSTINE
     Indication: Autologous haematopoietic stem cell transplant
     Dosage: RECEIVED CONDITIONING REGIMEN WITH MCVAC
     Route: 065
  6. RANIMUSTINE [Suspect]
     Active Substance: RANIMUSTINE
     Indication: B-cell lymphoma refractory
  7. CYTARABINE [Suspect]
     Active Substance: CYTARABINE
     Indication: Autologous haematopoietic stem cell transplant
     Dosage: RELAPSED OR REFRACTORY B-CELL LYMPHOMA
     Route: 065
  8. CYTARABINE [Suspect]
     Active Substance: CYTARABINE
     Indication: B-cell lymphoma refractory

REACTIONS (1)
  - Death [Fatal]
